FAERS Safety Report 4353617-7 (Version None)
Quarter: 2004Q2

REPORT INFORMATION
  Report Type: 
  Country: None (occurrence: None)
  Receive Date: 20040430
  Receipt Date: 20040416
  Transmission Date: 20050107
  Serious: Yes (Other)
  Sender: FDA-Public Use
  Company Number: 2004IM000604

PATIENT
  Age: 65 Year
  Sex: Female

DRUGS (4)
  1. ADVAFERON (A643_INTERFERON ALFACON-1) [Suspect]
     Indication: HEPATITIS C
     Dosage: 12 MU; QD; SUBCUTANEOUS
     Route: 058
     Dates: start: 20040414, end: 20040415
  2. RIBAVIRIN [Suspect]
     Indication: HEPATITIS C
     Dosage: 600 MG; BID; ORAL
     Route: 048
     Dates: start: 20040414, end: 20040415
  3. REBAMIPIDE [Concomitant]
  4. INDOMETHACIN [Concomitant]

REACTIONS (1)
  - LOSS OF CONSCIOUSNESS [None]
